FAERS Safety Report 7420254-7 (Version None)
Quarter: 2011Q2

REPORT INFORMATION
  Report Type: 
  Country: None (occurrence: None)
  Receive Date: 20110418
  Receipt Date: 20110418
  Transmission Date: 20111010
  Serious: Yes (Hospitalization, Other)
  Sender: FDA-Public Use
  Company Number: JP-PFIZER INC-2011073430

PATIENT
  Age: 53 Year
  Sex: Male

DRUGS (1)
  1. CHAMPIX [Suspect]
     Dosage: UNK
     Route: 048

REACTIONS (3)
  - ABNORMAL BEHAVIOUR [None]
  - BRAIN NEOPLASM [None]
  - DEMENTIA ALZHEIMER'S TYPE [None]
